FAERS Safety Report 7755084-X (Version None)
Quarter: 2011Q3

REPORT INFORMATION
  Report Type: 
  Country: None (occurrence: None)
  Receive Date: 20110913
  Receipt Date: 20110901
  Transmission Date: 20111222
  Serious: Yes (Other)
  Sender: FDA-Public Use
  Company Number: 2011-3622

PATIENT
  Age: 5 Year
  Sex: Female
  Weight: 16.7 kg

DRUGS (6)
  1. INCRELEX [Suspect]
     Indication: RETT'S DISORDER
     Dosage: 2.6 MG (1.3 MG, 2 IN 1 D), PARENTERAL
     Route: 051
     Dates: start: 20110729
  2. ZANTAC [Concomitant]
  3. COMBIVENT [Concomitant]
  4. LACTULOSE [Concomitant]
  5. ERYTHROMYCIN [Concomitant]
  6. BUDESONIDE [Concomitant]

REACTIONS (1)
  - GINGIVAL HYPERPLASIA [None]
